FAERS Safety Report 24035073 (Version 1)
Quarter: 2024Q3

REPORT INFORMATION
  Report Type: Report from Study
  Country: US (occurrence: US)
  Receive Date: 20240701
  Receipt Date: 20240701
  Transmission Date: 20241016
  Serious: No
  Sender: ROCHE
  Company Number: US-ROCHE-3569681

PATIENT
  Sex: Male
  Weight: 7.79 kg

DRUGS (1)
  1. EVRYSDI [Suspect]
     Active Substance: RISDIPLAM
     Indication: Spinal muscular atrophy
     Dosage: 2.1 ML ONCE DAILY
     Route: 050
     Dates: start: 20240426

REACTIONS (3)
  - Upper respiratory tract infection [Not Recovered/Not Resolved]
  - Rales [Unknown]
  - Lung disorder [Unknown]

NARRATIVE: CASE EVENT DATE: 20240510
